FAERS Safety Report 16854906 (Version 3)
Quarter: 2019Q4

REPORT INFORMATION
  Report Type: Report from Study
  Country: None (occurrence: EC)
  Receive Date: 20190926
  Receipt Date: 20191025
  Transmission Date: 20200122
  Serious: Yes (Hospitalization, Other)
  Sender: FDA-Public Use
  Company Number: EC-ABBVIE-19K-047-2934651-00

PATIENT
  Age: 51 Year
  Sex: Male
  Weight: 68 kg

DRUGS (2)
  1. SULFASALAZINE. [Concomitant]
     Active Substance: SULFASALAZINE
     Indication: PRODUCT USED FOR UNKNOWN INDICATION
     Route: 048
     Dates: start: 20180110
  2. HUMIRA [Suspect]
     Active Substance: ADALIMUMAB
     Indication: CROHN^S DISEASE
     Route: 058
     Dates: end: 20191008

REACTIONS (8)
  - Gastrointestinal tract irritation [Recovering/Resolving]
  - Crohn^s disease [Recovering/Resolving]
  - Colon cancer [Not Recovered/Not Resolved]
  - Arthralgia [Recovering/Resolving]
  - Drug interaction [Unknown]
  - Blood test abnormal [Recovering/Resolving]
  - Nephrolithiasis [Unknown]
  - Frequent bowel movements [Recovering/Resolving]

NARRATIVE: CASE EVENT DATE: 20190918
